FAERS Safety Report 10369062 (Version 1)
Quarter: 2014Q3

REPORT INFORMATION
  Report Type: Spontaneous
  Country: US (occurrence: US)
  Receive Date: 20140807
  Receipt Date: 20140807
  Transmission Date: 20150326
  Serious: Yes (Other)
  Sender: FDA-Public Use
  Company Number: US-BAYER-2014-114688

PATIENT
  Age: 16 Year
  Sex: Female

DRUGS (1)
  1. GADAVIST [Suspect]
     Active Substance: GADOBUTROL
     Dosage: 6.2 ML, ONCE

REACTIONS (8)
  - Dyspnoea [Recovering/Resolving]
  - Oral discomfort [Recovering/Resolving]
  - Dizziness [Recovering/Resolving]
  - Chest discomfort [Recovering/Resolving]
  - Hyperhidrosis [Recovering/Resolving]
  - Salivary hypersecretion [Recovering/Resolving]
  - Pallor [Recovering/Resolving]
  - Pain [None]

NARRATIVE: CASE EVENT DATE: 20140730
